FAERS Safety Report 13928343 (Version 2)
Quarter: 2017Q3

REPORT INFORMATION
  Report Type: Spontaneous
  Country: US (occurrence: US)
  Receive Date: 20170901
  Receipt Date: 20170915
  Transmission Date: 20171127
  Serious: Yes (Other)
  Sender: FDA-Public Use
  Company Number: US-009507513-1708USA011014

PATIENT
  Age: 55 Year
  Sex: Male

DRUGS (9)
  1. LEVAQUIN [Concomitant]
     Active Substance: LEVOFLOXACIN
  2. PIPERACILLIN AND TAZOBACTAM [Concomitant]
     Active Substance: PIPERACILLIN SODIUM\TAZOBACTAM SODIUM
  3. OXYGEN. [Concomitant]
     Active Substance: OXYGEN
     Dosage: 6 L
  4. AMIKACIN [Suspect]
     Active Substance: AMIKACIN
     Indication: PNEUMONIA BACTERIAL
  5. VANCOMYCIN [Concomitant]
     Active Substance: VANCOMYCIN
  6. CANCIDAS [Concomitant]
     Active Substance: CASPOFUNGIN ACETATE
  7. AMIKACIN [Suspect]
     Active Substance: AMIKACIN
     Indication: NOCARDIOSIS
     Dosage: UNK
  8. PRIMAXIN IV [Suspect]
     Active Substance: CILASTATIN SODIUM\IMIPENEM
     Indication: NOCARDIOSIS
     Dosage: UNK
  9. PRIMAXIN IV [Suspect]
     Active Substance: CILASTATIN SODIUM\IMIPENEM
     Indication: PNEUMONIA BACTERIAL

REACTIONS (1)
  - Drug ineffective [Unknown]
